FAERS Safety Report 5866615-9 (Version None)
Quarter: 2008Q3

REPORT INFORMATION
  Report Type: 
  Country: None (occurrence: None)
  Receive Date: 20080902
  Receipt Date: 20080821
  Transmission Date: 20090109
  Serious: Yes (Other)
  Sender: FDA-Public Use
  Company Number: DE-BAXTER-2008BH006395

PATIENT
  Age: 54 Year
  Sex: Female
  Weight: 62 kg

DRUGS (1)
  1. GAMMAGARD LIQUID [Suspect]
     Indication: SELECTIVE IGG SUBCLASS DEFICIENCY
     Dosage: DOSE UNIT:UNKNOWN
     Route: 042
     Dates: start: 20080617, end: 20080617

REACTIONS (4)
  - DYSPNOEA [None]
  - HOT FLUSH [None]
  - INFUSION RELATED REACTION [None]
  - TACHYCARDIA [None]
